FAERS Safety Report 8662921 (Version 3)
Quarter: 2012Q4

REPORT INFORMATION
  Report Type: 
  Country: DK (occurrence: IT)
  Receive Date: 20120712
  Receipt Date: 20121024
  Transmission Date: 20130627
  Serious: Yes (Death, Other)
  Sender: FDA-Public Use
  Company Number: IT-FRI-1000037024

PATIENT

DRUGS (3)
  1. ESCITALOPRAM [Suspect]
     Dosage: 10 mg
     Route: 064
     Dates: end: 20120622
  2. ESCITALOPRAM [Suspect]
     Dosage: 10 mg
     Route: 064
     Dates: start: 20120613, end: 20120622
  3. PASADEN [Concomitant]
     Route: 064

REACTIONS (2)
  - Foetal growth restriction [Fatal]
  - Foetal exposure during pregnancy [Not Recovered/Not Resolved]
